FAERS Safety Report 10572308 (Version 1)
Quarter: 2014Q4

REPORT INFORMATION
  Report Type: Spontaneous
  Country: CA (occurrence: CA)
  Receive Date: 20141109
  Receipt Date: 20141109
  Transmission Date: 20150529
  Serious: Yes (Death)
  Sender: FDA-Public Use
  Company Number: CA-PFIZER INC-2014306176

PATIENT
  Age: 79 Year
  Sex: Female
  Weight: 32.65 kg

DRUGS (7)
  1. REVATIO [Suspect]
     Active Substance: SILDENAFIL CITRATE
     Indication: PULMONARY HYPERTENSION
     Dosage: 20 MG, 3X/DAY
     Route: 048
     Dates: start: 20130510
  2. PREVACID [Concomitant]
     Active Substance: LANSOPRAZOLE
  3. FOLIC ACID. [Concomitant]
     Active Substance: FOLIC ACID
  4. REVATIO [Suspect]
     Active Substance: SILDENAFIL CITRATE
     Indication: CONNECTIVE TISSUE DISORDER
  5. FUROSEMIDE. [Concomitant]
     Active Substance: FUROSEMIDE
  6. CALCIUM + VIT D [Concomitant]
     Active Substance: CALCIUM\VITAMIN D
     Dosage: 400 IU, UNK
  7. FERREUX SULFATE [Concomitant]

REACTIONS (3)
  - Disease progression [Fatal]
  - Pulmonary hypertension [Fatal]
  - Connective tissue disorder [Fatal]

NARRATIVE: CASE EVENT DATE: 20141012
